FAERS Safety Report 23139240 (Version 1)
Quarter: 2023Q4

REPORT INFORMATION
  Report Type: Spontaneous
  Country: US (occurrence: None)
  Receive Date: 20231102
  Receipt Date: 20231102
  Transmission Date: 20240110
  Serious: Yes (Hospitalization)
  Sender: FDA-Public Use
  Company Number: None

PATIENT
  Age: 61 Year
  Sex: Female

DRUGS (6)
  1. HUMIRA [Suspect]
     Active Substance: ADALIMUMAB
     Indication: Rheumatoid arthritis
     Dosage: OTHER QUANTITY : 40MG/0.4ML;?
     Route: 058
     Dates: start: 20230601
  2. BUMETANIDE 1MG TABLETS+MED REC COMPLETE [Concomitant]
  3. ACETAMINOPHEN 325MG [Concomitant]
  4. MULTIVITAMIN ADULTS TABLET [Concomitant]
  5. VITAMIN B1 (THIAMINE) 100MG [Concomitant]
  6. FERROUS SULFATE 325MG [Concomitant]

REACTIONS (5)
  - Pneumonia [None]
  - Sepsis [None]
  - Respiratory failure [None]
  - Therapy interrupted [None]
  - Dizziness [None]

NARRATIVE: CASE EVENT DATE: 20231001
